FAERS Safety Report 9573358 (Version 3)
Quarter: 2013Q4

REPORT INFORMATION
  Report Type: Spontaneous
  Country: GB (occurrence: None)
  Receive Date: 20130927
  Receipt Date: 20131107
  Transmission Date: 20140711
  Serious: Yes (Other)
  Sender: FDA-Public Use
  Company Number: KAD201309-001222

PATIENT
  Age: 59 Year
  Sex: Male

DRUGS (3)
  1. RIBAVIRIN [Suspect]
     Indication: HEPATITIS C
     Route: 048
     Dates: start: 20121025
  2. INTERFERON ALFA-2B [Suspect]
     Indication: HEPATITIS C
     Route: 058
     Dates: start: 20121025
  3. INCIVO (TELAPREVIR) [Suspect]
     Indication: HEPATITIS C
     Dosage: 750 MG, THRICE DAILY, ORAL
     Route: 048
     Dates: start: 20121025, end: 20130117

REACTIONS (12)
  - Fatigue [None]
  - Malaise [None]
  - Local swelling [None]
  - Lethargy [None]
  - Nausea [None]
  - Pruritus generalised [None]
  - Rash [None]
  - Swelling face [None]
  - Fatigue [None]
  - Insomnia [None]
  - Depression [None]
  - Rash pruritic [None]
